FAERS Safety Report 7401006-0 (Version None)
Quarter: 2011Q2

REPORT INFORMATION
  Report Type: 
  Country: None (occurrence: None)
  Receive Date: 20110407
  Receipt Date: 20110323
  Transmission Date: 20111010
  Serious: Yes (Hospitalization)
  Sender: FDA-Public Use
  Company Number: BE-ELI_LILLY_AND_COMPANY-BE201102002076

PATIENT
  Sex: Male

DRUGS (2)
  1. OLANZAPINE [Suspect]
     Indication: BIPOLAR DISORDER
     Dosage: 10 MG, QD
     Route: 048
     Dates: start: 20100611
  2. MANIPREX [Concomitant]
     Indication: BIPOLAR DISORDER
     Dosage: 500 MG, UNK
     Dates: start: 20080101

REACTIONS (1)
  - PULMONARY EMBOLISM [None]
